FAERS Safety Report 25025227 (Version 6)
Quarter: 2025Q2

REPORT INFORMATION
  Report Type: Spontaneous
  Country: ES (occurrence: ES)
  Receive Date: 20250228
  Receipt Date: 20250515
  Transmission Date: 20250716
  Serious: Yes (Other)
  Sender: APELLIS PHARMACEUTICALS
  Company Number: ES-BIOVITRUM-2025-ES-002498

PATIENT

DRUGS (4)
  1. PEGCETACOPLAN [Suspect]
     Active Substance: PEGCETACOPLAN
     Indication: Paroxysmal nocturnal haemoglobinuria
     Route: 042
  2. PEGCETACOPLAN [Suspect]
     Active Substance: PEGCETACOPLAN
     Dates: start: 20250310
  3. PEGCETACOPLAN [Suspect]
     Active Substance: PEGCETACOPLAN
     Route: 058
     Dates: start: 20250321
  4. AVATROMBOPAG [Suspect]
     Active Substance: AVATROMBOPAG
     Indication: Thrombocytopenia
     Dates: start: 202405

REACTIONS (11)
  - Viral infection [Unknown]
  - Haemolysis [Recovered/Resolved]
  - Abdominal pain [Unknown]
  - Bone marrow failure [Unknown]
  - Anaemia [Not Recovered/Not Resolved]
  - Blood lactate dehydrogenase increased [Recovering/Resolving]
  - Cytopenia [Recovered/Resolved]
  - Condition aggravated [Recovered/Resolved]
  - Infection [Unknown]
  - Upper respiratory tract infection [Not Recovered/Not Resolved]
  - Off label use [Not Recovered/Not Resolved]

NARRATIVE: CASE EVENT DATE: 20240701
